FAERS Safety Report 10572783 (Version 3)
Quarter: 2015Q1

REPORT INFORMATION
  Report Type: Spontaneous
  Country: US (occurrence: None)
  Receive Date: 20141106
  Receipt Date: 20150204
  Transmission Date: 20150720
  Serious: Yes (Other)
  Sender: FDA-Public Use
  Company Number: ADR-2014-01420

PATIENT
  Age: 53 Year
  Sex: Female

DRUGS (2)
  1. MORPHINE INTRATHECAL [Suspect]
     Active Substance: MORPHINE
  2. BACLOFEN INTRATHECAL [Suspect]
     Active Substance: BACLOFEN
     Indication: MUSCLE SPASTICITY

REACTIONS (15)
  - Peripheral swelling [None]
  - Device inversion [None]
  - Thrombosis [None]
  - Implant site warmth [None]
  - Influenza [None]
  - Pain in extremity [None]
  - Device dislocation [None]
  - Medical device discomfort [None]
  - Device alarm issue [None]
  - Seizure [None]
  - Pump reservoir issue [None]
  - Withdrawal syndrome [None]
  - Therapeutic response decreased [None]
  - Multiple sclerosis [None]
  - Stress [None]
